FAERS Safety Report 10595908 (Version 3)
Quarter: 2015Q4

REPORT INFORMATION
  Report Type: Spontaneous
  Country: CA (occurrence: CA)
  Receive Date: 20141120
  Receipt Date: 20151208
  Transmission Date: 20160304
  Serious: Yes (Other)
  Sender: FDA-Public Use
  Company Number: CA-BAYER-2014-168032

PATIENT
  Age: 38 Year
  Sex: Female

DRUGS (3)
  1. CYTOTEC [Concomitant]
     Active Substance: MISOPROSTOL
     Dosage: 400 MG, UNK
     Route: 015
  2. NAPROXEN. [Concomitant]
     Active Substance: NAPROXEN
  3. MIRENA [Suspect]
     Active Substance: LEVONORGESTREL
     Dosage: 20 MCG/24HR, CONT
     Route: 015
     Dates: start: 20141106

REACTIONS (12)
  - Amenorrhoea [None]
  - Complication of device insertion [None]
  - Uterine cervical pain [None]
  - Seizure [None]
  - Syncope [Recovered/Resolved]
  - Pain in extremity [None]
  - Procedural pain [None]
  - Abdominal pain [None]
  - Dyspareunia [None]
  - Vaginal infection [None]
  - Vision blurred [None]
  - Pyrexia [None]

NARRATIVE: CASE EVENT DATE: 20141106
